FAERS Safety Report 13527295 (Version 1)
Quarter: 2017Q2

REPORT INFORMATION
  Report Type: Spontaneous
  Country: BR (occurrence: BR)
  Receive Date: 20170509
  Receipt Date: 20170509
  Transmission Date: 20170830
  Serious: Yes (Other)
  Sender: FDA-Public Use
  Company Number: BR-PFIZER INC-2017194618

PATIENT
  Sex: Female

DRUGS (3)
  1. FRONTAL [Suspect]
     Active Substance: ALPRAZOLAM
     Dosage: 0.5 MG (0.25 MG, 2 TABLETS), UNK
  2. FRONTAL [Suspect]
     Active Substance: ALPRAZOLAM
     Dosage: UNK
  3. RIVOTRIL [Concomitant]
     Active Substance: CLONAZEPAM
     Dosage: UNK

REACTIONS (3)
  - Drug prescribing error [Unknown]
  - Dementia [Not Recovered/Not Resolved]
  - Bedridden [Not Recovered/Not Resolved]
